FAERS Safety Report 26185691 (Version 1)
Quarter: 2025Q4

REPORT INFORMATION
  Report Type: Spontaneous
  Country: US (occurrence: None)
  Receive Date: 20251222
  Receipt Date: 20251222
  Transmission Date: 20260117
  Serious: Yes (Hospitalization)
  Sender: ORGANON
  Company Number: US-MLMSERVICE-20251201-PI734901-00080-1

PATIENT
  Age: 79 Year
  Sex: Female

DRUGS (2)
  1. CARBIDOPA\LEVODOPA [Suspect]
     Active Substance: CARBIDOPA\LEVODOPA
     Dosage: UNK
  2. CARBIDOPA\LEVODOPA [Suspect]
     Active Substance: CARBIDOPA\LEVODOPA
     Dosage: RECENT INCREASE IN DOSE

REACTIONS (1)
  - Fall [Unknown]
